FAERS Safety Report 4664268-9 (Version None)
Quarter: 2005Q2

REPORT INFORMATION
  Report Type: 
  Country: None (occurrence: None)
  Receive Date: 20050516
  Receipt Date: 20050516
  Transmission Date: 20051028
  Serious: Yes (Other)
  Sender: FDA-Public Use
  Company Number: None

PATIENT
  Age: 39 Year
  Sex: Female

DRUGS (5)
  1. BEXTRA [Suspect]
     Indication: INFLAMMATION
     Dosage: 20MG.1X DAILY ORALLY
     Route: 048
     Dates: start: 20040813, end: 20050407
  2. BEXTRA [Suspect]
     Indication: MIGRAINE
     Dosage: 20MG.1X DAILY ORALLY
     Route: 048
     Dates: start: 20040813, end: 20050407
  3. BEXTRA [Suspect]
     Indication: PAIN
     Dosage: 20MG.1X DAILY ORALLY
     Route: 048
     Dates: start: 20040813, end: 20050407
  4. PREVACID [Concomitant]
     Indication: MENSTRUAL DISORDER
  5. INDERAL [Concomitant]

REACTIONS (6)
  - ERYTHEMA [None]
  - MASS [None]
  - PURULENCE [None]
  - SCAB [None]
  - SKIN BURNING SENSATION [None]
  - SKIN LESION [None]
